FAERS Safety Report 5973549-8 (Version None)
Quarter: 2008Q4

REPORT INFORMATION
  Report Type: 
  Country: None (occurrence: None)
  Receive Date: 20081201
  Receipt Date: 20081121
  Transmission Date: 20090506
  Serious: Yes (Other)
  Sender: FDA-Public Use
  Company Number: US-AMGEN-QUU316614

PATIENT
  Sex: Male
  Weight: 121.7 kg

DRUGS (3)
  1. ENBREL [Suspect]
     Indication: PSORIATIC ARTHROPATHY
     Route: 058
     Dates: start: 20040501, end: 20080401
  2. PREDNISONE TAB [Concomitant]
     Dates: start: 20000301
  3. METHOTREXATE [Concomitant]

REACTIONS (7)
  - BACK PAIN [None]
  - BRAIN OEDEMA [None]
  - DEMYELINATION [None]
  - DRUG INEFFECTIVE [None]
  - OSTEOPENIA [None]
  - PSORIATIC ARTHROPATHY [None]
  - SYNOVITIS [None]
